FAERS Safety Report 7289059-4 (Version None)
Quarter: 2011Q1

REPORT INFORMATION
  Report Type: 
  Country: None (occurrence: None)
  Receive Date: 20110201
  Receipt Date: 20110124
  Transmission Date: 20110831
  Serious: Yes (Life-Threatening, Hospitalization, Disabling, Other)
  Sender: FDA-Public Use
  Company Number: 2010SP065534

PATIENT
  Age: 41 Year
  Sex: Female

DRUGS (5)
  1. AVELOX [Suspect]
     Indication: BRONCHITIS
     Dosage: 400 MG, QD;
     Dates: end: 20101219
  2. NASONEX [Suspect]
     Indication: BRONCHITIS
     Dosage: 2 DF, QD;
  3. COSOPT [Concomitant]
  4. ALPHAGAN [Concomitant]
  5. ASMANEX TWISTHALER [Suspect]
     Indication: BRONCHITIS
     Dosage: 2 DF, QD, INH
     Route: 055
     Dates: end: 20101217

REACTIONS (3)
  - ANAPHYLACTIC SHOCK [None]
  - BLOOD URINE PRESENT [None]
  - OFF LABEL USE [None]
